FAERS Safety Report 4404241-9 (Version None)
Quarter: 2004Q3

REPORT INFORMATION
  Report Type: 
  Country: None (occurrence: None)
  Receive Date: 20040720
  Receipt Date: 20040706
  Transmission Date: 20050211
  Serious: Yes (Other)
  Sender: FDA-Public Use
  Company Number: BE-JNJFOC-20040602363

PATIENT
  Age: 43 Year
  Sex: Female

DRUGS (2)
  1. PROPULSID [Suspect]
     Indication: IMPAIRED GASTRIC EMPTYING
     Dosage: 10 MG, 3 IN 1 DAY, ORAL
     Route: 048
     Dates: start: 20031006, end: 20040426
  2. ALPRAZOLAM [Concomitant]

REACTIONS (2)
  - ELECTROCARDIOGRAM QT CORRECTED INTERVAL PROLONGED [None]
  - ELECTROCARDIOGRAM QT PROLONGED [None]
